FAERS Safety Report 5919828-1 (Version None)
Quarter: 2008Q4

REPORT INFORMATION
  Report Type: 
  Country: None (occurrence: None)
  Receive Date: 20081010
  Receipt Date: 20080929
  Transmission Date: 20090506
  Serious: Yes (Disabling)
  Sender: FDA-Public Use
  Company Number: GXKR2008IN08574

PATIENT
  Age: 22 Year
  Sex: Female
  Weight: 44.7 kg

DRUGS (11)
  1. RIFAMPICIN+ISONIAZID+PYRAZINAMIDE+ETHAMBUTOL HYDROCHLORIDE (NGX) (ETHA [Suspect]
     Indication: PULMONARY TUBERCULOSIS
     Dosage: ORAL
     Route: 048
     Dates: start: 20080403, end: 20080830
  2. PYRAZINAMIDE [Suspect]
     Indication: PULMONARY TUBERCULOSIS
  3. LEVOFLOXACIN [Concomitant]
  4. ONDANSETRON (ONDANSETRON) DRY SYRUP [Concomitant]
  5. RABEPRAZOLE SODIUM [Concomitant]
  6. AMOXICILLIN + CLAVULANIC ACID (AMOXICILLIN, CLAVULANIC ACID) DRY SYRUP [Concomitant]
  7. LIVER TONIC (CHOLINE BITARTRATE, INOSITOL, SILYBUM MARIANUM, TARAXACUM [Concomitant]
  8. DOMPERIDONE (DOMPERIDONE) [Concomitant]
  9. ETHIONAMIDE (ETHIONAMIDE) [Concomitant]
  10. ALLOPURINOL [Concomitant]
  11. PIROXICAM [Concomitant]

REACTIONS (1)
  - GOUT [None]
